FAERS Safety Report 25735376 (Version 1)
Quarter: 2025Q3

REPORT INFORMATION
  Report Type: Spontaneous
  Country: BR (occurrence: BR)
  Receive Date: 20250828
  Receipt Date: 20250828
  Transmission Date: 20251020
  Serious: Yes (Hospitalization, Other)
  Sender: BRACCO
  Company Number: BR-BRACCO-2025BR05862

PATIENT
  Age: 38 Year
  Sex: Female

DRUGS (5)
  1. SULFUR HEXAFLUORIDE [Suspect]
     Active Substance: SULFUR HEXAFLUORIDE
     Indication: Hysterosalpingogram
     Dates: start: 20250806, end: 20250806
  2. SULFUR HEXAFLUORIDE [Suspect]
     Active Substance: SULFUR HEXAFLUORIDE
     Indication: Hysterosalpingogram
     Dates: start: 20250806, end: 20250806
  3. SULFUR HEXAFLUORIDE [Suspect]
     Active Substance: SULFUR HEXAFLUORIDE
     Indication: Hysterosalpingogram
     Dates: start: 20250806, end: 20250806
  4. ADALIMUMAB [Concomitant]
     Active Substance: ADALIMUMAB
     Dates: end: 202508
  5. VITAMINS [Concomitant]
     Active Substance: VITAMINS
     Route: 042
     Dates: end: 202508

REACTIONS (5)
  - Renal failure [Recovered/Resolved]
  - Pyrexia [Recovered/Resolved]
  - Hypothermia [Recovered/Resolved]
  - Migraine [Recovered/Resolved]
  - Abdominal pain [Recovered/Resolved]

NARRATIVE: CASE EVENT DATE: 20250807
